FAERS Safety Report 8715388 (Version 4)
Quarter: 2013Q2

REPORT INFORMATION
  Report Type: Spontaneous
  Country: US (occurrence: US)
  Receive Date: 20120809
  Receipt Date: 20130606
  Transmission Date: 20140414
  Serious: Yes (Other)
  Sender: FDA-Public Use
  Company Number: US-CELGENEUS-163-21880-12070746

PATIENT
  Age: 57 Year
  Sex: Male

DRUGS (4)
  1. REVLIMID [Suspect]
     Indication: PLASMA CELL MYELOMA
     Dosage: 25 MILLIGRAM
     Route: 048
     Dates: start: 20110516, end: 201111
  2. REVLIMID [Suspect]
     Dosage: 10 MILLIGRAM
     Route: 048
     Dates: start: 20120530
  3. ZOMETA [Suspect]
     Indication: PLASMA CELL MYELOMA
     Route: 041
     Dates: start: 20110503, end: 20120530
  4. METHADONE [Concomitant]
     Indication: PRODUCT USED FOR UNKNOWN INDICATION
     Route: 065

REACTIONS (4)
  - Osteonecrosis of jaw [Not Recovered/Not Resolved]
  - Dyspnoea [Unknown]
  - Migraine [Unknown]
  - Gastrooesophageal reflux disease [Unknown]
